FAERS Safety Report 12530381 (Version 1)
Quarter: 2016Q3

REPORT INFORMATION
  Report Type: Spontaneous
  Country: US (occurrence: None)
  Receive Date: 20160705
  Receipt Date: 20160705
  Transmission Date: 20161109
  Serious: Yes (Disabling, Other)
  Sender: FDA-Public Use
  Company Number: None

PATIENT
  Age: 59 Year
  Sex: Male
  Weight: 97.52 kg

DRUGS (1)
  1. XARELTO [Suspect]
     Active Substance: RIVAROXABAN
     Indication: ATRIAL FLUTTER
     Dosage: 30 TABLET(S) WITH DINNER TAKEN BY MOUTH
     Route: 048
     Dates: start: 20160526, end: 20160603

REACTIONS (7)
  - Amnesia [None]
  - Confusional state [None]
  - Dyspnoea [None]
  - Cognitive disorder [None]
  - Spinal operation [None]
  - Grip strength decreased [None]
  - Chromaturia [None]

NARRATIVE: CASE EVENT DATE: 20160528
